FAERS Safety Report 17690029 (Version 3)
Quarter: 2020Q4

REPORT INFORMATION
  Report Type: Report from Study
  Country: CA (occurrence: CA)
  Receive Date: 20200421
  Receipt Date: 20201023
  Transmission Date: 20210113
  Serious: Yes (Other)
  Sender: FDA-Public Use
  Company Number: NVSC2020CA087654

PATIENT
  Sex: Female

DRUGS (7)
  1. XELJANZ [Concomitant]
     Active Substance: TOFACITINIB CITRATE
     Dosage: UNK
     Route: 048
  2. METHOTREXATE SODIUM. [Suspect]
     Active Substance: METHOTREXATE SODIUM
     Indication: PRODUCT USED FOR UNKNOWN INDICATION
     Dosage: UNK
     Route: 042
  3. XELJANZ [Concomitant]
     Active Substance: TOFACITINIB CITRATE
     Indication: PRODUCT USED FOR UNKNOWN INDICATION
     Dosage: UNK
     Route: 042
  4. SULFASALAZINE. [Concomitant]
     Active Substance: SULFASALAZINE
     Indication: PRODUCT USED FOR UNKNOWN INDICATION
     Dosage: UNK
     Route: 048
  5. ERELZI [Suspect]
     Active Substance: ETANERCEPT-SZZS
     Indication: RHEUMATOID ARTHRITIS
     Dosage: 50 MG, QW
     Route: 058
     Dates: start: 20200414
  6. ERELZI [Suspect]
     Active Substance: ETANERCEPT-SZZS
     Dosage: UNK
     Route: 058
     Dates: start: 2020
  7. HYDROXYCHLOROQUINE [Concomitant]
     Active Substance: HYDROXYCHLOROQUINE
     Indication: PRODUCT USED FOR UNKNOWN INDICATION
     Dosage: UNK
     Route: 048

REACTIONS (28)
  - Blister [Unknown]
  - Blood cholesterol increased [Unknown]
  - Feeling abnormal [Unknown]
  - Arthropod bite [Unknown]
  - Sinusitis [Unknown]
  - Myalgia [Unknown]
  - Chest discomfort [Unknown]
  - Pain [Unknown]
  - Trigger finger [Unknown]
  - Swelling face [Unknown]
  - Oral mucosal discolouration [Unknown]
  - Erythema [Unknown]
  - Pneumonia [Unknown]
  - Asthenia [Unknown]
  - Headache [Unknown]
  - Pain in extremity [Unknown]
  - Cough [Unknown]
  - Dysstasia [Unknown]
  - Arthralgia [Unknown]
  - Weight increased [Unknown]
  - COVID-19 [Unknown]
  - Body temperature decreased [Unknown]
  - Joint swelling [Unknown]
  - Loss of consciousness [Unknown]
  - Eye swelling [Unknown]
  - Chest pain [Unknown]
  - Blood pressure increased [Unknown]
  - Injection site pain [Unknown]

NARRATIVE: CASE EVENT DATE: 2020
